FAERS Safety Report 15432237 (Version 1)
Quarter: 2018Q3

REPORT INFORMATION
  Report Type: Report from Study
  Country: None (occurrence: ES)
  Receive Date: 20180926
  Receipt Date: 20180926
  Transmission Date: 20181010
  Serious: Yes (Death, Hospitalization)
  Sender: FDA-Public Use
  Company Number: ES-ABBVIE-17P-144-2176525-00

PATIENT
  Age: 87 Year
  Sex: Male

DRUGS (15)
  1. DEXAMETHASONE. [Suspect]
     Active Substance: DEXAMETHASONE
     Indication: PLASMA CELL MYELOMA
     Dosage: DAYS 1?2, 4?5, 8?9, 11?12
     Route: 048
     Dates: start: 20170710, end: 20171121
  2. TAMSULOSINA [Concomitant]
     Active Substance: TAMSULOSIN HYDROCHLORIDE
     Indication: BENIGN PROSTATIC HYPERPLASIA
     Route: 048
     Dates: start: 2004
  3. HIDROXIL B12B6B1 [Concomitant]
     Indication: VITAMIN SUPPLEMENTATION
     Dosage: 250 MG B1, 250 MG B6, 500 MG B12
     Route: 048
     Dates: start: 2012
  4. VALTREX [Concomitant]
     Active Substance: VALACYCLOVIR HYDROCHLORIDE
     Indication: ANTIVIRAL TREATMENT
     Route: 048
     Dates: start: 2012
  5. VINOCRIT [Concomitant]
     Indication: ANAEMIA
     Route: 058
     Dates: start: 2015
  6. SITAGLIPTINA Y METFORMINA [Concomitant]
     Indication: DIABETES MELLITUS
     Dosage: 50/1000MG
     Route: 058
     Dates: start: 1970
  7. ENOXAPARINA [Concomitant]
     Active Substance: ENOXAPARIN
     Indication: ARRHYTHMIA PROPHYLAXIS
     Route: 042
     Dates: start: 20171103
  8. ABASAGLAR [Concomitant]
     Active Substance: INSULIN GLARGINE
     Indication: DIABETES MELLITUS
     Route: 058
     Dates: start: 20171123
  9. VENETOCLAX. [Suspect]
     Active Substance: VENETOCLAX
     Indication: PLASMA CELL MYELOMA
     Route: 048
     Dates: start: 20170710, end: 20171122
  10. BORTEZOMIB. [Suspect]
     Active Substance: BORTEZOMIB
     Indication: PLASMA CELL MYELOMA
     Route: 058
     Dates: start: 20170710, end: 20171120
  11. OMEPRAZOL [Concomitant]
     Active Substance: OMEPRAZOLE
     Indication: PROPHYLAXIS
     Route: 048
     Dates: start: 201208
  12. ENOXAPARINA [Concomitant]
     Active Substance: ENOXAPARIN
     Indication: ATRIAL FIBRILLATION
  13. EUGLUCON [Concomitant]
     Active Substance: GLYBURIDE
     Indication: DIABETES MELLITUS
     Route: 048
     Dates: start: 1960
  14. APIDRA [Concomitant]
     Active Substance: INSULIN GLULISINE
     Indication: ANTIVIRAL TREATMENT
     Dosage: 100U/ML
     Route: 058
     Dates: start: 2005
  15. ENALAPRIL/HIDROCLOROTIAZIDA [Concomitant]
     Indication: HYPERTENSION
     Route: 048
     Dates: start: 1990

REACTIONS (2)
  - Pneumonia [Recovered/Resolved]
  - Cardio-respiratory arrest [Fatal]

NARRATIVE: CASE EVENT DATE: 20171123
